FAERS Safety Report 5957216-2 (Version None)
Quarter: 2008Q4

REPORT INFORMATION
  Report Type: 
  Country: None (occurrence: None)
  Receive Date: 20081118
  Receipt Date: 20081107
  Transmission Date: 20090506
  Serious: Yes (Hospitalization)
  Sender: FDA-Public Use
  Company Number: US-BAXTER-2008BH012088

PATIENT
  Age: 73 Year
  Sex: Male

DRUGS (4)
  1. DIANEAL [Suspect]
     Indication: HYPERTENSION
     Dosage: DOSE UNIT:UNKNOWN
     Dates: start: 20050701
  2. DIANEAL [Suspect]
     Indication: DIABETES MELLITUS
     Dosage: DOSE UNIT:UNKNOWN
     Dates: start: 20050701
  3. DIANEAL [Suspect]
     Indication: HYPERTENSION
     Dosage: DOSE UNIT:UNKNOWN
     Route: 033
     Dates: start: 20050701
  4. DIANEAL [Suspect]
     Indication: DIABETES MELLITUS
     Dosage: DOSE UNIT:UNKNOWN
     Route: 033
     Dates: start: 20050701

REACTIONS (1)
  - DEVICE MALFUNCTION [None]
